FAERS Safety Report 14917062 (Version 3)
Quarter: 2018Q3

REPORT INFORMATION
  Report Type: Spontaneous
  Country: GB (occurrence: GB)
  Receive Date: 20180520
  Receipt Date: 20180702
  Transmission Date: 20181010
  Serious: Yes (Disabling)
  Sender: FDA-Public Use
  Company Number: GB-BAXTER-2018BAX014353

PATIENT
  Age: 11 Year
  Sex: Female

DRUGS (4)
  1. BUPIVACAINE?CLARIS 5MG/ML SOLUTION FOR INJECTION [Suspect]
     Active Substance: BUPIVACAINE HYDROCHLORIDE
     Indication: ANAESTHESIA
     Dosage: ONE OFF DOSE
     Route: 008
     Dates: start: 20160209, end: 20160209
  2. KENALOG [Suspect]
     Active Substance: TRIAMCINOLONE ACETONIDE
     Indication: ANAESTHESIA
     Route: 065
  3. KENALOG [Suspect]
     Active Substance: TRIAMCINOLONE ACETONIDE
     Indication: SPINAL OPERATION
     Dosage: 40MG/1MLONE OFF DOSE
     Route: 008
     Dates: start: 20160209, end: 20160209
  4. LIDOCAINE 20MG/ML SOLUTION FOR INJECTION [Suspect]
     Active Substance: LIDOCAINE
     Indication: ANAESTHESIA
     Dosage: 100MG/10ML ONE OFF DOSE
     Route: 058
     Dates: start: 20160209, end: 20160209

REACTIONS (4)
  - Swelling face [Not Recovered/Not Resolved]
  - Product use issue [Unknown]
  - Vision blurred [Not Recovered/Not Resolved]
  - Off label use [Unknown]

NARRATIVE: CASE EVENT DATE: 20160224
